FAERS Safety Report 6297404-1 (Version None)
Quarter: 2009Q3

REPORT INFORMATION
  Report Type: 
  Country: None (occurrence: None)
  Receive Date: 20090804
  Receipt Date: 20090804
  Transmission Date: 20100115
  Serious: Yes (Other)
  Sender: FDA-Public Use
  Company Number: None

PATIENT

DRUGS (1)
  1. BETAMETHASONE VALERATE [Suspect]
     Indication: DERMATITIS ATOPIC
     Dosage: 1 3 URETHRAL
     Route: 066
     Dates: start: 20090515, end: 20090516

REACTIONS (3)
  - ATROPHY [None]
  - ERYTHEMA [None]
  - PENIS DISORDER [None]
